FAERS Safety Report 7039120-4 (Version None)
Quarter: 2010Q4

REPORT INFORMATION
  Report Type: 
  Country: None (occurrence: None)
  Receive Date: 20101012
  Receipt Date: 20101006
  Transmission Date: 20110411
  Serious: Yes (Hospitalization)
  Sender: FDA-Public Use
  Company Number: US-CEPHALON-2010005304

PATIENT
  Sex: Female

DRUGS (2)
  1. FENTORA [Suspect]
     Indication: BREAKTHROUGH PAIN
     Route: 002
  2. DURAGESIC-100 [Concomitant]

REACTIONS (3)
  - DRUG INEFFECTIVE [None]
  - HOSPITALISATION [None]
  - PRODUCT TASTE ABNORMAL [None]
